FAERS Safety Report 24630192 (Version 1)
Quarter: 2024Q4

REPORT INFORMATION
  Report Type: Report from Study
  Country: US (occurrence: US)
  Receive Date: 20241118
  Receipt Date: 20241118
  Transmission Date: 20250115
  Serious: Yes (Other)
  Sender: ROCHE
  Company Number: US-ROCHE-10000130504

PATIENT
  Age: 66 Year
  Sex: Female

DRUGS (21)
  1. ACTEMRA ACTPEN [Suspect]
     Active Substance: TOCILIZUMAB
     Indication: Rheumatoid arthritis
     Dosage: MORE DOSAGE INFORMATION IS 162 MG PRE-FILLED SYRINGE
     Route: 058
  2. ACTEMRA ACTPEN [Suspect]
     Active Substance: TOCILIZUMAB
  3. ACTEMRA [Suspect]
     Active Substance: TOCILIZUMAB
     Indication: Rheumatoid arthritis
     Dosage: STRENGTH:162 MG/0.9ML
     Route: 058
  4. METHADONE [Concomitant]
     Active Substance: METHADONE HYDROCHLORIDE
     Route: 048
     Dates: start: 20110725
  5. CALCIUM CITRATE [Concomitant]
     Active Substance: CALCIUM CITRATE
     Dates: start: 20110725
  6. SUCRALFATE [Concomitant]
     Active Substance: SUCRALFATE
     Route: 048
     Dates: start: 20110726
  7. AMLODIPINE [Concomitant]
     Active Substance: AMLODIPINE BESYLATE
     Route: 048
  8. MAGNESIUM OXIDE [Concomitant]
     Active Substance: MAGNESIUM OXIDE
  9. METFORMIN [Concomitant]
     Active Substance: METFORMIN HYDROCHLORIDE
     Route: 048
  10. PRISTIQ EXTENDED-RELEASE [Concomitant]
     Active Substance: DESVENLAFAXINE SUCCINATE
     Route: 048
  11. LYRICA [Concomitant]
     Active Substance: PREGABALIN
     Route: 048
     Dates: start: 20190730
  12. SYNTHROID [Concomitant]
     Active Substance: LEVOTHYROXINE SODIUM
     Route: 048
     Dates: start: 20190730
  13. SHINGRIX [Concomitant]
     Active Substance: RECOMBINANT VARICELLA ZOSTER VIRUS (VZV) GLYCOPROTEIN E
     Dosage: 50 MCG/0.5 ML INTRAMUSCULAR SUSPENSION, KIT
     Dates: start: 20200922
  14. BUPROPION [Concomitant]
     Active Substance: BUPROPION
     Route: 048
  15. ATORVASTATIN [Concomitant]
     Active Substance: ATORVASTATIN
     Route: 048
  16. LOSARTAN [Concomitant]
     Active Substance: LOSARTAN
     Route: 048
  17. TIZANIDINE [Concomitant]
     Active Substance: TIZANIDINE
     Route: 048
  18. XTAMPZA ER [Concomitant]
     Active Substance: OXYCODONE
     Route: 048
  19. LANTUS SOLOSTAR [Concomitant]
     Active Substance: INSULIN GLARGINE
     Dosage: U-100 INSULIN 100 UNIT/ML (3 ML) SUBCUTANEOUS PEN
     Route: 058
  20. SKYRIZI [Concomitant]
     Active Substance: RISANKIZUMAB-RZAA
     Route: 058
  21. PREDNISONE [Concomitant]
     Active Substance: PREDNISONE

REACTIONS (18)
  - Fibromyalgia [Unknown]
  - Fatigue [Unknown]
  - Night sweats [Unknown]
  - Dry mouth [Unknown]
  - Deafness [Unknown]
  - Diplopia [Unknown]
  - Dry eye [Unknown]
  - Dysphagia [Unknown]
  - Memory impairment [Unknown]
  - Paraesthesia [Unknown]
  - Anxiety [Unknown]
  - Depression [Unknown]
  - Back pain [Unknown]
  - Arthralgia [Unknown]
  - Joint swelling [Unknown]
  - Musculoskeletal stiffness [Unknown]
  - Muscle spasms [Unknown]
  - Asthenia [Unknown]
